FAERS Safety Report 9582699 (Version 1)
Quarter: 2013Q4

REPORT INFORMATION
  Report Type: Spontaneous
  Country: US (occurrence: US)
  Receive Date: 20131002
  Receipt Date: 20131002
  Transmission Date: 20140711
  Serious: Yes (Hospitalization)
  Sender: FDA-Public Use
  Company Number: US-AMGEN-USASP2013041813

PATIENT
  Age: 66 Year
  Sex: Male
  Weight: 100.23 kg

DRUGS (9)
  1. ENBREL [Suspect]
     Indication: PRODUCT USED FOR UNKNOWN INDICATION
     Dosage: 50 MG, QWK
     Route: 058
  2. PREDNISONE [Concomitant]
     Dosage: 10 MG, UNK
  3. AMLODIPINE [Concomitant]
     Dosage: 2.5 MG, UNK
  4. ATENOLOL [Concomitant]
     Dosage: 50 MG, UNK
  5. SIMVASTATIN [Concomitant]
     Dosage: 80 MG, UNK
  6. CALCIUM +D                         /00944201/ [Concomitant]
     Dosage: UNK
  7. NIACIN [Concomitant]
     Dosage: 250 MG, UNK SR
  8. B12                                /00056201/ [Concomitant]
     Dosage: 1 MG, UNK
  9. CENTRUM SILVER                     /02363801/ [Concomitant]
     Dosage: UNK

REACTIONS (2)
  - Acute sinusitis [Unknown]
  - Cellulitis orbital [Unknown]
